FAERS Safety Report 5829725-8 (Version None)
Quarter: 2008Q3

REPORT INFORMATION
  Report Type: 
  Country: None (occurrence: None)
  Receive Date: 20080801
  Receipt Date: 20080716
  Transmission Date: 20090109
  Serious: Yes (Hospitalization)
  Sender: FDA-Public Use
  Company Number: US-BRISTOL-MYERS SQUIBB COMPANY-14264618

PATIENT
  Age: 50 Year
  Sex: Male
  Weight: 100 kg

DRUGS (10)
  1. ERBITUX [Suspect]
     Indication: COLON CANCER
     Dosage: FIRST COURSE STARTED ON 29APR08
     Route: 042
     Dates: start: 20080527, end: 20080527
  2. FLUOROURACIL [Suspect]
     Indication: COLON CANCER
     Dosage: FIRST COURSE TAKEN ON 29APR08
     Route: 042
     Dates: start: 20080527, end: 20080527
  3. LEUCOVORIN CALCIUM [Suspect]
     Indication: COLON CANCER
     Dosage: FIRST COURSE TAKEN ON 29APR08
     Route: 042
     Dates: start: 20080527, end: 20080527
  4. ELOXATIN [Suspect]
     Indication: COLON CANCER
     Dosage: FIRST COURSE TAKEN ON 29APR08
     Route: 042
     Dates: start: 20080527, end: 20080527
  5. BACTRIM [Concomitant]
     Indication: JOINT SWELLING
     Route: 065
  6. POTASSIUM CHLORIDE [Concomitant]
     Indication: HYPOKALAEMIA
     Dosage: 10JUN08-10JUN08;11JUN08-UNK.
     Route: 042
     Dates: start: 20080610
  7. LORAZEPAM [Concomitant]
     Indication: VOMITING
     Route: 065
  8. ZOFRAN [Concomitant]
     Indication: VOMITING
     Route: 065
  9. CLINDAGEL [Concomitant]
     Route: 065
  10. COMPAZINE [Concomitant]
     Indication: VOMITING

REACTIONS (5)
  - CHOLECYSTITIS INFECTIVE [None]
  - DEHYDRATION [None]
  - DIARRHOEA [None]
  - HYPOALBUMINAEMIA [None]
  - HYPOKALAEMIA [None]
